FAERS Safety Report 24295137 (Version 2)
Quarter: 2024Q4

REPORT INFORMATION
  Report Type: Spontaneous
  Country: FR (occurrence: FR)
  Receive Date: 20240907
  Receipt Date: 20241121
  Transmission Date: 20250114
  Serious: Yes (Hospitalization, Other)
  Sender: AUROBINDO
  Company Number: FR-AFSSAPS-TO2024001663

PATIENT
  Age: 24 Year
  Sex: Male
  Weight: 97 kg

DRUGS (2)
  1. ACETAMINOPHEN [Suspect]
     Active Substance: ACETAMINOPHEN
     Indication: Oropharyngeal pain
     Dosage: 2 GRAM, ONCE A DAY
     Route: 048
     Dates: start: 20240817, end: 20240821
  2. CLARITHROMYCIN [Suspect]
     Active Substance: CLARITHROMYCIN
     Indication: Tonsillitis streptococcal
     Dosage: 500 MILLIGRAM, ONCE A DAY (250 MG 2X/JOUR)
     Route: 065
     Dates: start: 20240817, end: 20240822

REACTIONS (1)
  - Pancreatitis acute [Recovered/Resolved]

NARRATIVE: CASE EVENT DATE: 20240824
